FAERS Safety Report 19226829 (Version 1)
Quarter: 2021Q2

REPORT INFORMATION
  Report Type: Spontaneous
  Country: US (occurrence: US)
  Receive Date: 20210506
  Receipt Date: 20210506
  Transmission Date: 20210717
  Serious: No
  Sender: FDA-Public Use
  Company Number: US-JNJFOC-20210507727

PATIENT
  Age: 35 Year
  Sex: Male

DRUGS (1)
  1. KETOCONAZOLE. [Suspect]
     Active Substance: KETOCONAZOLE
     Indication: PRODUCT USED FOR UNKNOWN INDICATION
     Dosage: USED DAILY AT FIRST, THEN USED EVERY FEW DAYS
     Route: 061
     Dates: start: 20200925, end: 20210307

REACTIONS (13)
  - Weight decreased [Recovering/Resolving]
  - Inappropriate schedule of product administration [Unknown]
  - Alopecia [Recovering/Resolving]
  - Confusional state [Recovering/Resolving]
  - Illness [Recovering/Resolving]
  - Body temperature decreased [Recovering/Resolving]
  - Skin ulcer [Recovering/Resolving]
  - Dizziness [Recovering/Resolving]
  - Acne [Recovering/Resolving]
  - Chest pain [Recovering/Resolving]
  - Intentional product misuse [Unknown]
  - Decreased appetite [Recovering/Resolving]
  - Asthenia [Recovering/Resolving]

NARRATIVE: CASE EVENT DATE: 20200925
